FAERS Safety Report 4386761-9 (Version None)
Quarter: 2004Q2

REPORT INFORMATION
  Report Type: 
  Country: None (occurrence: None)
  Receive Date: 20040629
  Receipt Date: 20040609
  Transmission Date: 20050107
  Serious: Yes (Death, Other)
  Sender: FDA-Public Use
  Company Number: DE-MERCK-0406DEU00064

PATIENT
  Age: 68 Year
  Sex: Male

DRUGS (7)
  1. ENOXAPARIN SODIUM [Concomitant]
     Route: 058
  2. FUROSEMIDE [Concomitant]
     Route: 065
  3. RAMIPRIL [Concomitant]
     Route: 065
  4. VIOXX [Suspect]
     Route: 048
     Dates: start: 20040531, end: 20040606
  5. SPIRONOLACTONE [Concomitant]
     Route: 065
     Dates: start: 20040605
  6. THIOCTIC ACID [Concomitant]
     Route: 065
  7. TORSEMIDE [Concomitant]
     Route: 065
     Dates: start: 20040501

REACTIONS (4)
  - CARDIAC FAILURE [None]
  - DEPRESSED LEVEL OF CONSCIOUSNESS [None]
  - GAMMOPATHY [None]
  - HEPATIC FAILURE [None]
